FAERS Safety Report 4872455-X (Version None)
Quarter: 2006Q1

REPORT INFORMATION
  Report Type: 
  Country: None (occurrence: None)
  Receive Date: 20060104
  Receipt Date: 20050110
  Transmission Date: 20060701
  Serious: Yes (Hospitalization, Other)
  Sender: FDA-Public Use
  Company Number: US-MERCK-0501USA00863

PATIENT
  Age: 56 Year
  Sex: Male
  Weight: 98 kg

DRUGS (1)
  1. VIOXX [Suspect]
     Indication: PAIN
     Route: 048
     Dates: start: 20020201, end: 20021001

REACTIONS (6)
  - ANXIETY [None]
  - CARDIAC DISORDER [None]
  - CARDIOMYOPATHY [None]
  - MIGRAINE [None]
  - MYOCARDIAL INFARCTION [None]
  - NERVE COMPRESSION [None]
